FAERS Safety Report 6275799-2 (Version None)
Quarter: 2009Q3

REPORT INFORMATION
  Report Type: 
  Country: None (occurrence: None)
  Receive Date: 20090717
  Receipt Date: 20081215
  Transmission Date: 20100115
  Serious: Yes (Death)
  Sender: FDA-Public Use
  Company Number: 2008-1728

PATIENT
  Age: 35 Year
  Sex: Male

DRUGS (1)
  1. SOMATULINE AUTOGEL (LANREOTIDE) (LANREOTIDE ACETATE) [Suspect]
     Indication: PANCREATIC NEUROENDOCRINE TUMOUR
     Dates: start: 20081006

REACTIONS (2)
  - NEOPLASM PROGRESSION [None]
  - PANCREATIC NEUROENDOCRINE TUMOUR [None]
